FAERS Safety Report 20947461 (Version 1)
Quarter: 2022Q2

REPORT INFORMATION
  Report Type: Spontaneous
  Country: CN (occurrence: CN)
  Receive Date: 20220610
  Receipt Date: 20220610
  Transmission Date: 20220720
  Serious: Yes (Other)
  Sender: FDA-Public Use
  Company Number: None

PATIENT
  Age: 56 Year
  Sex: Male
  Weight: 62 kg

DRUGS (2)
  1. CYCLOPHOSPHAMIDE [Suspect]
     Active Substance: CYCLOPHOSPHAMIDE
     Indication: Plasma cell myeloma
     Dosage: 0.4 G, QD (DOSAGE FORM: INJECTION), CYCLOPHOSPHAMIDE 0.4G + NS 200ML
     Route: 041
     Dates: start: 20220419, end: 20220419
  2. SODIUM CHLORIDE [Suspect]
     Active Substance: SODIUM CHLORIDE
     Indication: Medication dilution
     Dosage: 200 ML, QD, CYCLOPHOSPHAMIDE 0.4G + NS 200 ML
     Route: 041
     Dates: start: 20220419, end: 20220419

REACTIONS (2)
  - Myelosuppression [Recovering/Resolving]
  - Pancytopenia [Recovering/Resolving]

NARRATIVE: CASE EVENT DATE: 20220505
